FAERS Safety Report 20268630 (Version 2)
Quarter: 2022Q1

REPORT INFORMATION
  Report Type: Report from Study
  Country: HU (occurrence: None)
  Receive Date: 20220101
  Receipt Date: 20220211
  Transmission Date: 20220424
  Serious: Yes (Hospitalization)
  Sender: FDA-Public Use
  Company Number: HU-ROCHE-2990661

PATIENT

DRUGS (1)
  1. RITUXIMAB [Suspect]
     Active Substance: RITUXIMAB
     Indication: Diffuse large B-cell lymphoma
     Dosage: .ON 08/DEC/2021 LAST DOSE PRIOR TO EVENT
     Route: 065

REACTIONS (2)
  - Blood uric acid increased [Unknown]
  - Vomiting [Unknown]

NARRATIVE: CASE EVENT DATE: 20211208
